FAERS Safety Report 8639414 (Version 5)
Quarter: 2013Q1

REPORT INFORMATION
  Report Type: Spontaneous
  Country: FR (occurrence: FR)
  Receive Date: 20120627
  Receipt Date: 20130212
  Transmission Date: 20140127
  Serious: Yes (Other)
  Sender: FDA-Public Use
  Company Number: FR-JNJFOC-20120611113

PATIENT
  Sex: Male

DRUGS (10)
  1. PREZISTA [Suspect]
     Indication: HIV INFECTION
     Route: 048
     Dates: end: 201209
  2. PREZISTA [Suspect]
     Indication: HIV INFECTION
     Route: 048
     Dates: start: 201009
  3. NORVIR [Suspect]
     Indication: HIV INFECTION
     Route: 048
     Dates: end: 201209
  4. NORVIR [Suspect]
     Indication: HIV INFECTION
     Route: 048
     Dates: start: 201009
  5. TRUVADA [Suspect]
     Indication: HIV INFECTION
     Route: 048
     Dates: start: 201009
  6. BILTRICIDE [Concomitant]
     Indication: SCHISTOSOMIASIS
     Dosage: TREATMENT STOPPED AFTER 3 COURSES ON 28-APR-2012, 02-MAY-2012 AND 12-MAY-2012
     Route: 065
     Dates: start: 201204
  7. BILTRICIDE [Concomitant]
     Indication: SCHISTOSOMIASIS
     Route: 065
     Dates: start: 201203
  8. BILTRICIDE [Concomitant]
     Indication: INFECTION PARASITIC
     Dosage: TREATMENT STOPPED AFTER 3 COURSES ON 28-APR-2012, 02-MAY-2012 AND 12-MAY-2012
     Route: 065
     Dates: start: 201204
  9. BILTRICIDE [Concomitant]
     Indication: INFECTION PARASITIC
     Route: 065
     Dates: start: 201203
  10. ISENTRESS [Concomitant]
     Indication: HIV INFECTION
     Route: 048
     Dates: start: 201009, end: 201011

REACTIONS (9)
  - Hepatocellular injury [Not Recovered/Not Resolved]
  - Cholestasis [Not Recovered/Not Resolved]
  - Eosinophilia [Unknown]
  - Gamma-glutamyltransferase increased [Recovering/Resolving]
  - Alanine aminotransferase increased [Recovering/Resolving]
  - Aspartate aminotransferase increased [Recovering/Resolving]
  - Liver disorder [Unknown]
  - Hepatitis B DNA assay positive [Not Recovered/Not Resolved]
  - Drug ineffective [Unknown]
